FAERS Safety Report 9566587 (Version 5)
Quarter: 2014Q1

REPORT INFORMATION
  Report Type: Report from Study
  Country: DE (occurrence: DE)
  Receive Date: 20130930
  Receipt Date: 20140121
  Transmission Date: 20141002
  Serious: Yes (Other)
  Sender: FDA-Public Use
  Company Number: DE-PFIZER INC-2013270840

PATIENT
  Age: 72 Year
  Sex: Male
  Weight: 72.1 kg

DRUGS (17)
  1. TEMSIROLIMUS [Suspect]
     Indication: ACUTE MYELOID LEUKAEMIA
     Dosage: 12.5 MG, CYCLIC (INDUCTION I)
     Route: 042
     Dates: start: 20130906
  2. DAUNORUBICIN HCL [Suspect]
     Indication: ACUTE MYELOID LEUKAEMIA
     Dosage: 116.4 MG, DAILY
     Route: 042
     Dates: start: 20130909, end: 20130910
  3. CYTARABINE [Concomitant]
     Indication: ACUTE MYELOID LEUKAEMIA
     Dosage: 194 MG, DAILY
     Route: 042
     Dates: start: 20130907
  4. ACICLOVIR [Concomitant]
     Indication: ANTIVIRAL PROPHYLAXIS
     Dosage: 400 MG, 3X/DAY
     Route: 048
     Dates: start: 20130903
  5. HYDROCHLOROTHIAZIDE/IRBESARTAN HYDROCHLORIDE [Concomitant]
     Indication: HYPERTENSION
     Dosage: 12.5MG/150MG, DAILY
     Route: 048
     Dates: start: 20130905
  6. TRIMETHOPRIM COMP.-RATIOPHARM [Concomitant]
     Indication: ANTIBIOTIC PROPHYLAXIS
     Dosage: 80 MG TRIMETHOPRIM /10 MG SULFAMETHOXAZOLE ON MONDAY AND THURSDAY
     Route: 048
     Dates: start: 20130905
  7. TAMSULOSIN [Concomitant]
     Indication: BENIGN PROSTATIC HYPERPLASIA
     Dosage: 0.4 MG, DAILY
     Route: 048
     Dates: start: 20130905
  8. TORASEMIDE [Concomitant]
     Indication: HYPERTENSION
     Dosage: 10 MG, DAILY
     Route: 048
     Dates: start: 20130909
  9. COLISTIN [Concomitant]
     Dosage: UNK
     Dates: start: 20130911, end: 20130913
  10. VERGENTAN [Concomitant]
     Dosage: UNK
     Dates: start: 20130911, end: 20130915
  11. REFOBACIN [Concomitant]
     Dosage: UNK
     Dates: start: 20130912, end: 20130914
  12. TAZOBAC [Concomitant]
     Dosage: UNK
     Dates: start: 20130912, end: 20130915
  13. OXYGEN [Concomitant]
     Dosage: UNK
     Dates: start: 20130912
  14. VANCOMYCIN [Concomitant]
     Dosage: UNK
     Dates: start: 20130915
  15. MERONEM [Concomitant]
     Dosage: UNK
     Dates: start: 20130915
  16. NOVALGIN [Concomitant]
     Dosage: UNK
     Dates: start: 20130917
  17. CASPOFUNGIN [Concomitant]
     Dosage: UNK
     Dates: start: 20130917

REACTIONS (1)
  - Cardiac failure [Recovered/Resolved]
